FAERS Safety Report 9916235 (Version 1)
Quarter: 2014Q1

REPORT INFORMATION
  Report Type: Spontaneous
  Country: US (occurrence: None)
  Receive Date: 20140219
  Receipt Date: 20140219
  Transmission Date: 20141002
  Serious: Yes (Hospitalization)
  Sender: FDA-Public Use
  Company Number: UTC-043717

PATIENT
  Age: 61 Year
  Sex: Male
  Weight: 86.4 kg

DRUGS (2)
  1. REMODULIN [Suspect]
     Indication: COR PULMONALE CHRONIC
     Dates: start: 20130830
  2. WARFARIN [Concomitant]

REACTIONS (2)
  - Incorrect dose administered [None]
  - Adverse drug reaction [None]
